FAERS Safety Report 24120188 (Version 4)
Quarter: 2024Q3

REPORT INFORMATION
  Report Type: Spontaneous
  Country: CA (occurrence: CA)
  Receive Date: 20240722
  Receipt Date: 20240912
  Transmission Date: 20241017
  Serious: Yes (Hospitalization, Other)
  Sender: PFIZER
  Company Number: CA-PFIZER INC-202400219207

PATIENT
  Age: 25 Year
  Sex: Female

DRUGS (16)
  1. RUXIENCE [Suspect]
     Active Substance: RITUXIMAB-PVVR
     Indication: Stiff person syndrome
     Dosage: 1000 MG, DAY 1 AND DAY 15
     Route: 042
     Dates: start: 20240207, end: 20240220
  2. RUXIENCE [Suspect]
     Active Substance: RITUXIMAB-PVVR
     Dosage: 1000 MG, DAY 1 AND DAY 15
     Route: 042
     Dates: start: 20240220
  3. RUXIENCE [Suspect]
     Active Substance: RITUXIMAB-PVVR
     Dosage: 1000 MG, SUBSEQUENT DAY 1( DAY 1 AND DAY 15 )
     Route: 042
     Dates: start: 20240807
  4. RUXIENCE [Suspect]
     Active Substance: RITUXIMAB-PVVR
     Dosage: 1000 MG,DAY 1 (DAY 1 AND DAY 15 )
     Route: 042
     Dates: start: 20240821
  5. BACLOFEN [Concomitant]
     Active Substance: BACLOFEN
     Dosage: 50 MG
  6. CITALOPRAM [Concomitant]
     Active Substance: CITALOPRAM\CITALOPRAM HYDROBROMIDE
     Dosage: 20 MG
  7. DIAZEPAM [Concomitant]
     Active Substance: DIAZEPAM
     Dosage: 5 MG
  8. DILTIAZEM [Concomitant]
     Active Substance: DILTIAZEM
     Dosage: 45 MG
  9. IVIGLOB EX [Concomitant]
     Active Substance: HUMAN IMMUNOGLOBULIN G
     Dosage: 8 MG
  10. MIDODRINE [Concomitant]
     Active Substance: MIDODRINE
     Dosage: 5 MG
  11. PANTOPRAZOLE [Concomitant]
     Active Substance: PANTOPRAZOLE
     Dosage: 40 MG
  12. PREGABALIN [Concomitant]
     Active Substance: PREGABALIN
     Dosage: 75 MG
  13. PREDNISONE [Concomitant]
     Active Substance: PREDNISONE
     Dosage: 5 MG
  14. RITUXIMAB [Concomitant]
     Active Substance: RITUXIMAB
     Dosage: UNK
  15. SEPTRA [Concomitant]
     Active Substance: SULFAMETHOXAZOLE\TRIMETHOPRIM
     Dosage: 1 DF, 800/160MG
  16. TIZANIDINE [Concomitant]
     Active Substance: TIZANIDINE
     Dosage: 2 MG

REACTIONS (4)
  - Pneumonia [Recovered/Resolved]
  - Hypothyroidism [Not Recovered/Not Resolved]
  - Nausea [Recovered/Resolved]
  - Dizziness [Recovered/Resolved]

NARRATIVE: CASE EVENT DATE: 20240301
